FAERS Safety Report 18253948 (Version 2)
Quarter: 2020Q3

REPORT INFORMATION
  Report Type: Spontaneous
  Country: US (occurrence: US)
  Receive Date: 20200910
  Receipt Date: 20200929
  Transmission Date: 20201103
  Serious: No
  Sender: FDA-Public Use
  Company Number: US-ASTRAZENECA-2020SF13066

PATIENT
  Age: 27078 Day
  Sex: Male
  Weight: 116.1 kg

DRUGS (7)
  1. PROTONIX [Concomitant]
     Active Substance: PANTOPRAZOLE SODIUM
  2. OXYGEN. [Concomitant]
     Active Substance: OXYGEN
  3. IMFINZI [Suspect]
     Active Substance: DURVALUMAB
     Indication: NON-SMALL CELL LUNG CANCER
     Route: 042
  4. MUCINEX [Concomitant]
     Active Substance: GUAIFENESIN
  5. NEBULIZER WITH ALBUTEROL [Concomitant]
     Active Substance: ALBUTEROL
     Route: 055
  6. HYCODAN [Concomitant]
     Active Substance: HOMATROPINE METHYLBROMIDE\HYDROCODONE BITARTRATE
  7. IMFINZI [Suspect]
     Active Substance: DURVALUMAB
     Indication: NON-SMALL CELL LUNG CANCER
     Route: 042

REACTIONS (3)
  - Pyrexia [Recovered/Resolved]
  - Pharyngitis [Unknown]
  - Oesophagitis [Unknown]

NARRATIVE: CASE EVENT DATE: 20200704
